FAERS Safety Report 6748433-2 (Version None)
Quarter: 2010Q2

REPORT INFORMATION
  Report Type: 
  Country: None (occurrence: None)
  Receive Date: 20100526
  Receipt Date: 20090508
  Transmission Date: 20101027
  Serious: Yes (Other)
  Sender: FDA-Public Use
  Company Number: 278791

PATIENT
  Age: 69 Year
  Sex: Female
  Weight: 52.2 kg

DRUGS (6)
  1. ACTIVELLA [Suspect]
     Indication: HOT FLUSH
     Dosage: ORAL
     Route: 048
     Dates: start: 20020201, end: 20030701
  2. ACTIVELLA [Suspect]
     Indication: MENOPAUSAL SYMPTOMS
     Dosage: ORAL
     Route: 048
     Dates: start: 20020201, end: 20030701
  3. PREMARIN [Suspect]
     Indication: HOT FLUSH
     Dates: start: 19920401, end: 19961201
  4. PREMPRO [Suspect]
     Indication: HOT FLUSH
     Dates: start: 19961201, end: 20020201
  5. ASPIRIN [Concomitant]
  6. ACTONEL [Concomitant]

REACTIONS (1)
  - BREAST CANCER [None]
